FAERS Safety Report 25820152 (Version 1)
Quarter: 2025Q3

REPORT INFORMATION
  Report Type: Spontaneous
  Country: EU (occurrence: EU)
  Receive Date: 20250919
  Receipt Date: 20250919
  Transmission Date: 20251020
  Serious: Yes (Other)
  Sender: ABBVIE
  Company Number: None

PATIENT
  Weight: 63 kg

DRUGS (2)
  1. ESCITALOPRAM OXALATE [Suspect]
     Active Substance: ESCITALOPRAM OXALATE
     Indication: Post-traumatic stress disorder
     Dosage: 1 DOSAGE FORM
     Route: 048
  2. DAFLON [Concomitant]
     Indication: Product used for unknown indication

REACTIONS (8)
  - Panic attack [Recovering/Resolving]
  - Fatigue [Recovering/Resolving]
  - Crying [Recovering/Resolving]
  - Nightmare [Recovering/Resolving]
  - Memory impairment [Recovering/Resolving]
  - Suicidal ideation [Recovering/Resolving]
  - Gait disturbance [Recovering/Resolving]
  - Mental impairment [Recovering/Resolving]
